FAERS Safety Report 5270325-9 (Version None)
Quarter: 2007Q1

REPORT INFORMATION
  Report Type: 
  Country: None (occurrence: None)
  Receive Date: 20070314
  Receipt Date: 20070226
  Transmission Date: 20070707
  Serious: Yes (Other)
  Sender: FDA-Public Use
  Company Number: 238093

PATIENT
  Sex: Female

DRUGS (2)
  1. HERCEPTIN [Suspect]
     Indication: BREAST CANCER
     Dosage: 2 MG/KG, 1/WEEK, IV DRIP
     Route: 041
     Dates: end: 20060825
  2. NAVELBINE [Concomitant]

REACTIONS (2)
  - AORTIC VALVE DISEASE [None]
  - CONDITION AGGRAVATED [None]
